FAERS Safety Report 24754011 (Version 1)
Quarter: 2024Q4

REPORT INFORMATION
  Report Type: Spontaneous
  Country: BY (occurrence: BY)
  Receive Date: 20241219
  Receipt Date: 20241219
  Transmission Date: 20250114
  Serious: Yes (Death)
  Sender: ABBVIE
  Company Number: BY-ABBVIE-6052807

PATIENT
  Age: 48 Year
  Sex: Male

DRUGS (10)
  1. LOPINAVIR\RITONAVIR [Suspect]
     Active Substance: LOPINAVIR\RITONAVIR
     Indication: Pulmonary tuberculosis
     Dosage: 0.2 GRAM
     Route: 048
     Dates: start: 20230620, end: 20230625
  2. Clofazam [Concomitant]
     Indication: Product used for unknown indication
  3. CYCLOSERINE [Concomitant]
     Active Substance: CYCLOSERINE
     Indication: Product used for unknown indication
  4. DOLUTEGRAVIR [Suspect]
     Active Substance: DOLUTEGRAVIR
     Indication: Pulmonary tuberculosis
     Dosage: 50 MILLIGRAM
     Route: 048
     Dates: start: 20230602, end: 20230625
  5. LINEZOLID [Suspect]
     Active Substance: LINEZOLID
     Indication: Pulmonary tuberculosis
     Dosage: 0.3 GRAM
     Route: 048
     Dates: start: 20230602, end: 20230619
  6. LINEZOLID [Suspect]
     Active Substance: LINEZOLID
     Indication: Pulmonary tuberculosis
     Dosage: 0.6 GRAM
     Route: 048
     Dates: start: 20230511, end: 20230601
  7. LEVOFLOXACIN [Suspect]
     Active Substance: LEVOFLOXACIN
     Indication: Pulmonary tuberculosis
     Dosage: 1 GRAM
     Route: 048
     Dates: start: 20230511, end: 20230619
  8. Bedaquilina [Concomitant]
     Indication: Product used for unknown indication
  9. EMTRICITABINE\TENOFOVIR DISOPROXIL FUMARATE [Suspect]
     Active Substance: EMTRICITABINE\TENOFOVIR DISOPROXIL FUMARATE
     Indication: Pulmonary tuberculosis
     Dosage: 0.2 GRAM
     Route: 048
     Dates: start: 20230602, end: 20230620
  10. DOLUTEGRAVIR\LAMIVUDINE\TENOFOVIR DISOPROXIL FUMARATE [Suspect]
     Active Substance: DOLUTEGRAVIR\LAMIVUDINE\TENOFOVIR DISOPROXIL FUMARATE
     Indication: Pulmonary tuberculosis
     Dosage: 0.3 MILLIGRAM
     Route: 048
     Dates: start: 20230511, end: 20230602

REACTIONS (5)
  - Myelosuppression [Fatal]
  - Anaemia [Fatal]
  - Acute kidney injury [Fatal]
  - Thrombocytopenia [Fatal]
  - Multiple organ dysfunction syndrome [Fatal]

NARRATIVE: CASE EVENT DATE: 20230529
